FAERS Safety Report 10330232 (Version 1)
Quarter: 2014Q3

REPORT INFORMATION
  Report Type: Spontaneous
  Country: US (occurrence: US)
  Receive Date: 20140721
  Receipt Date: 20140721
  Transmission Date: 20150326
  Serious: Yes (Hospitalization, Other)
  Sender: FDA-Public Use
  Company Number: US-ABBVIE-14P-163-1259136-00

PATIENT
  Sex: Male
  Weight: 86.26 kg

DRUGS (7)
  1. UNNAMED MEDICATION [Concomitant]
     Active Substance: UNSPECIFIED INGREDIENT
     Indication: BLOOD CHOLESTEROL INCREASED
  2. HUMIRA [Suspect]
     Active Substance: ADALIMUMAB
     Dosage: FOUR WEEKS AFTER 160 MG DOSE
     Dates: start: 2010
  3. UNNAMED MEDICATION [Concomitant]
     Active Substance: UNSPECIFIED INGREDIENT
     Indication: HYPERTENSION
  4. HUMIRA [Suspect]
     Active Substance: ADALIMUMAB
     Indication: CROHN^S DISEASE
     Dates: start: 2010, end: 2010
  5. CARVEDILOL. [Concomitant]
     Active Substance: CARVEDILOL
     Indication: HYPERTENSION
  6. HUMIRA [Suspect]
     Active Substance: ADALIMUMAB
     Dosage: TWO WEEKS AFTER 160 MG DOSE
     Dates: start: 2010, end: 2010
  7. ANTIBIOTICS [Suspect]
     Active Substance: UNSPECIFIED INGREDIENT
     Indication: INFECTION
     Dosage: FOR INFECTION OF HAND
     Route: 042
     Dates: start: 2012, end: 2012

REACTIONS (10)
  - Liver disorder [Unknown]
  - Animal scratch [Recovered/Resolved]
  - Injury [Recovered/Resolved]
  - Upper extremity mass [Recovered/Resolved]
  - Peripheral swelling [Recovered/Resolved]
  - Renal disorder [Recovered/Resolved]
  - Peripheral swelling [Recovered/Resolved]
  - Heart rate irregular [Not Recovered/Not Resolved]
  - Localised infection [Recovered/Resolved]
  - Alcohol intolerance [Unknown]

NARRATIVE: CASE EVENT DATE: 2012
